FAERS Safety Report 24141288 (Version 1)
Quarter: 2024Q3

REPORT INFORMATION
  Report Type: Spontaneous
  Country: US (occurrence: None)
  Receive Date: 20240725
  Receipt Date: 20240725
  Transmission Date: 20241017
  Serious: Yes (Hospitalization, Other)
  Sender: Public
  Company Number: None

PATIENT
  Age: 39 Year
  Sex: Female
  Weight: 67.05 kg

DRUGS (9)
  1. SKYRIZI [Suspect]
     Active Substance: RISANKIZUMAB-RZAA
     Indication: Crohn^s disease
     Dosage: OTHER FREQUENCY : 1/MONTH;?
     Route: 042
  2. SKYRIZI [Suspect]
     Active Substance: RISANKIZUMAB-RZAA
     Indication: Abscess
  3. NUVIGIL [Concomitant]
  4. LAMICTAL [Concomitant]
  5. WELLBUTRIN [Concomitant]
  6. IBUPROFEN [Concomitant]
  7. VITAMIN D [Concomitant]
     Active Substance: VITAMIN D NOS
  8. b12 complex [Concomitant]
  9. TYLENOL [Concomitant]

REACTIONS (6)
  - Dizziness [None]
  - Loss of consciousness [None]
  - Depressed level of consciousness [None]
  - Hypokinesia [None]
  - Coordination abnormal [None]
  - Slow speech [None]

NARRATIVE: CASE EVENT DATE: 20240724
